FAERS Safety Report 15603747 (Version 4)
Quarter: 2022Q2

REPORT INFORMATION
  Report Type: Spontaneous
  Country: US (occurrence: US)
  Receive Date: 20181109
  Receipt Date: 20220517
  Transmission Date: 20220721
  Serious: No
  Sender: FDA-Public Use
  Company Number: US-PFIZER INC-2018456839

PATIENT
  Age: 67 Year
  Sex: Female

DRUGS (1)
  1. ATORVASTATIN CALCIUM [Suspect]
     Active Substance: ATORVASTATIN CALCIUM
     Indication: Hypolipidaemia
     Dosage: 80 MG, DAILY
     Route: 048
     Dates: start: 20161206, end: 20170306

REACTIONS (5)
  - Myalgia [Recovered/Resolved]
  - Blood glucose abnormal [Recovering/Resolving]
  - Drug hypersensitivity [Unknown]
  - Weight increased [Unknown]
  - Flank pain [Recovering/Resolving]

NARRATIVE: CASE EVENT DATE: 20161206
